FAERS Safety Report 5837267-9 (Version None)
Quarter: 2008Q3

REPORT INFORMATION
  Report Type: 
  Country: None (occurrence: None)
  Receive Date: 20080807
  Receipt Date: 20080729
  Transmission Date: 20090109
  Serious: Yes (Hospitalization, Other)
  Sender: FDA-Public Use
  Company Number: CA-ABBOTT-08P-028-0467958-00

PATIENT
  Age: 77 Year
  Sex: Male
  Weight: 83.536 kg

DRUGS (5)
  1. MAVIK [Suspect]
     Indication: DRUG USE FOR UNKNOWN INDICATION
     Route: 048
  2. ATORVASTATIN CALCIUM [Concomitant]
     Indication: HYPERLIPIDAEMIA
     Route: 048
  3. AMLODIPINE [Concomitant]
     Indication: HYPERTENSION
     Route: 048
  4. ACETYLSALICYLIC ACID SRT [Concomitant]
     Indication: ANTIPLATELET THERAPY
     Route: 048
  5. FUROSEMIDE [Concomitant]
     Indication: DIURETIC THERAPY
     Route: 048

REACTIONS (1)
  - HIP FRACTURE [None]
